FAERS Safety Report 12608151 (Version 4)
Quarter: 2017Q2

REPORT INFORMATION
  Report Type: Report from Study
  Country: None (occurrence: ZA)
  Receive Date: 20160729
  Receipt Date: 20170526
  Transmission Date: 20170830
  Serious: Yes (Hospitalization, Other)
  Sender: FDA-Public Use
  Company Number: ZA-ABBVIE-16K-143-1686081-00

PATIENT
  Sex: Male
  Weight: 74 kg

DRUGS (7)
  1. HUMIRA [Suspect]
     Active Substance: ADALIMUMAB
     Dosage: WEEK 4 ONWARDS
     Route: 058
     Dates: start: 201603, end: 20160716
  2. AZATHIOPRINE. [Concomitant]
     Active Substance: AZATHIOPRINE
     Indication: CROHN^S DISEASE
     Route: 048
     Dates: start: 20150819
  3. PENTASA [Concomitant]
     Active Substance: MESALAMINE
     Indication: CROHN^S DISEASE
     Route: 048
  4. HUMIRA [Suspect]
     Active Substance: ADALIMUMAB
     Dosage: WEEK 2
     Route: 058
     Dates: start: 201602, end: 201602
  5. PYRIDOXINE [Concomitant]
     Active Substance: PYRIDOXINE
     Indication: PRODUCT USED FOR UNKNOWN INDICATION
     Dosage: NIGHTLY
  6. 5-ASA [Concomitant]
     Active Substance: MESALAMINE
     Indication: PRODUCT USED FOR UNKNOWN INDICATION
  7. HUMIRA [Suspect]
     Active Substance: ADALIMUMAB
     Indication: CROHN^S DISEASE
     Dosage: WEEK 0
     Route: 058
     Dates: start: 20160209, end: 20160209

REACTIONS (10)
  - Lymph node tuberculosis [Recovering/Resolving]
  - Wheezing [Unknown]
  - Oral tuberculosis [Recovering/Resolving]
  - Lymphadenopathy [Unknown]
  - Laryngeal ulceration [Unknown]
  - Tonsillitis [Unknown]
  - Aphonia [Unknown]
  - Vocal cord inflammation [Unknown]
  - Extrapulmonary tuberculosis [Unknown]
  - Pulmonary tuberculosis [Recovering/Resolving]

NARRATIVE: CASE EVENT DATE: 2016
